FAERS Safety Report 9922001 (Version 2)
Quarter: 2014Q2

REPORT INFORMATION
  Report Type: Spontaneous
  Country: US (occurrence: US)
  Receive Date: 20140225
  Receipt Date: 20140421
  Transmission Date: 20141212
  Serious: Yes (Disabling, Other)
  Sender: FDA-Public Use
  Company Number: US-SA-2014SA022486

PATIENT
  Age: 62 Year
  Sex: Female

DRUGS (4)
  1. LANTUS [Suspect]
     Indication: DIABETES MELLITUS
     Dosage: DOSE:20 UNIT(S)
     Route: 058
     Dates: end: 201403
  2. VITAMIN C [Concomitant]
  3. HMG COA REDUCTASE INHIBITORS [Concomitant]
  4. HERBAL PREPARATION [Concomitant]

REACTIONS (7)
  - Carotid arteriosclerosis [Unknown]
  - Blood cholesterol increased [Unknown]
  - Adverse event [Unknown]
  - Blood glucose decreased [Unknown]
  - Visual impairment [Unknown]
  - Blood glucose increased [Unknown]
  - Therapeutic response changed [Unknown]
